FAERS Safety Report 9454126 (Version 3)
Quarter: 2013Q4

REPORT INFORMATION
  Report Type: Spontaneous
  Country: US (occurrence: None)
  Receive Date: 20130807
  Receipt Date: 20131227
  Transmission Date: 20140711
  Serious: Yes (Hospitalization, Congenital Anomaly)
  Sender: FDA-Public Use
  Company Number: SYM-2013-07787

PATIENT
  Age: 0 Day
  Sex: Male

DRUGS (1)
  1. BUPROPION [Suspect]
     Indication: DEPRESSION
     Route: 064

REACTIONS (13)
  - Ventricular septal defect [None]
  - Transposition of the great vessels [None]
  - Atrial septal defect [None]
  - Patent ductus arteriosus [None]
  - Congenital tricuspid valve incompetence [None]
  - Maternal drugs affecting foetus [None]
  - Caesarean section [None]
  - Atrioventricular block [None]
  - Post procedural complication [None]
  - Gastrooesophageal reflux disease [None]
  - Vomiting [None]
  - Developmental delay [None]
  - Language disorder [None]
